FAERS Safety Report 20546295 (Version 1)
Quarter: 2022Q1

REPORT INFORMATION
  Report Type: Spontaneous
  Country: IT (occurrence: IT)
  Receive Date: 20220303
  Receipt Date: 20220303
  Transmission Date: 20220423
  Serious: Yes (Other)
  Sender: FDA-Public Use
  Company Number: IT-MYLANLABS-2022M1016476

PATIENT
  Age: 39 Year
  Sex: Male

DRUGS (6)
  1. PAROXETINE [Suspect]
     Active Substance: PAROXETINE
     Indication: Major depression
     Dosage: 40 MILLIGRAM
     Route: 065
     Dates: start: 201910
  2. ESKETAMINE [Concomitant]
     Active Substance: ESKETAMINE
     Indication: Obsessive-compulsive disorder
     Dosage: 56 MILLIGRAM, TWO TIMES PER WEEK ON FIRST MONTH
     Route: 045
  3. ESKETAMINE [Concomitant]
     Active Substance: ESKETAMINE
     Dosage: 56 MILLIGRAM, QW,IN THE SECOND MONTH
     Route: 045
  4. ESKETAMINE [Concomitant]
     Active Substance: ESKETAMINE
     Dosage: 56 MILLIGRAM, BIWEEKLY,56 MILLIGRAM, BIWEEKLY,IN THE THIRD AND ..
     Route: 045
  5. OLANZAPINE [Concomitant]
     Active Substance: OLANZAPINE
     Indication: Obsessive-compulsive disorder
     Dosage: 5 MILLIGRAM
     Route: 065
     Dates: start: 202010
  6. LAMOTRIGINE [Concomitant]
     Active Substance: LAMOTRIGINE
     Indication: Obsessive-compulsive disorder
     Dosage: 150 MILLIGRAM
     Route: 065
     Dates: start: 202010

REACTIONS (1)
  - Drug ineffective [Unknown]
